FAERS Safety Report 9229931 (Version 1)
Quarter: 2013Q2

REPORT INFORMATION
  Report Type: Spontaneous
  Country: US (occurrence: None)
  Receive Date: 20130412
  Receipt Date: 20130412
  Transmission Date: 20140414
  Serious: Yes (Hospitalization)
  Sender: FDA-Public Use
  Company Number: None

PATIENT
  Age: 73 Year
  Sex: Male
  Weight: 69 kg

DRUGS (2)
  1. CARBOPLATIN [Suspect]
     Dates: end: 20130319
  2. PACLITAXEL (TAXOL) [Suspect]
     Dates: start: 20130329

REACTIONS (5)
  - Abdominal pain [None]
  - Pneumonia klebsiella [None]
  - Alpha haemolytic streptococcal infection [None]
  - Pain in extremity [None]
  - Pain in extremity [None]
